FAERS Safety Report 10058762 (Version 1)
Quarter: 2014Q2

REPORT INFORMATION
  Report Type: Spontaneous
  Country: US (occurrence: US)
  Receive Date: 20140404
  Receipt Date: 20140404
  Transmission Date: 20141212
  Serious: No
  Sender: FDA-Public Use
  Company Number: US-GLAXOSMITHKLINE-A1011654A

PATIENT
  Age: 67 Year
  Sex: Male

DRUGS (2)
  1. ALLI [Suspect]
     Indication: WEIGHT DECREASED
     Dates: end: 20130210
  2. HYDROCORTISONE CREAM [Suspect]

REACTIONS (3)
  - Ear pruritus [Not Recovered/Not Resolved]
  - Ear discomfort [Not Recovered/Not Resolved]
  - Therapeutic response changed [Unknown]
